FAERS Safety Report 17555297 (Version 1)
Quarter: 2020Q1

REPORT INFORMATION
  Report Type: Spontaneous
  Country: US (occurrence: US)
  Receive Date: 20200318
  Receipt Date: 20200318
  Transmission Date: 20200409
  Serious: No
  Sender: FDA-Public Use
  Company Number: US-MYLANLABS-2020M1025922

PATIENT
  Sex: Female
  Weight: 70 kg

DRUGS (1)
  1. ESTRADIOL TRANSDERMAL SYSTEM [Suspect]
     Active Substance: ESTRADIOL
     Indication: MENOPAUSE
     Dosage: 75 MILLIGRAM, QD (ONCE WEEKLY)
     Route: 062
     Dates: start: 20200131

REACTIONS (3)
  - Application site pruritus [Recovered/Resolved]
  - Product adhesion issue [Unknown]
  - Product quality issue [Unknown]
